FAERS Safety Report 25670751 (Version 1)
Quarter: 2025Q3

REPORT INFORMATION
  Report Type: Spontaneous
  Country: AU (occurrence: AU)
  Receive Date: 20250812
  Receipt Date: 20250812
  Transmission Date: 20251021
  Serious: Yes (Death, Other)
  Sender: ELI LILLY AND COMPANY
  Company Number: AU-Merck Healthcare KGaA-2025039501

PATIENT
  Age: 36 Year
  Sex: Male

DRUGS (2)
  1. ERBITUX [Suspect]
     Active Substance: CETUXIMAB
     Indication: Colorectal cancer metastatic
     Route: 065
     Dates: start: 20230510
  2. BRAFTOVI [Suspect]
     Active Substance: ENCORAFENIB
     Indication: Colorectal cancer metastatic
     Route: 065
     Dates: start: 20230510

REACTIONS (5)
  - Death [Fatal]
  - Peritoneal disorder [Unknown]
  - Small intestinal obstruction [Unknown]
  - Malignant neoplasm progression [Unknown]
  - Off label use [Unknown]

NARRATIVE: CASE EVENT DATE: 20230713
